FAERS Safety Report 5655522-2 (Version None)
Quarter: 2008Q1

REPORT INFORMATION
  Report Type: 
  Country: None (occurrence: None)
  Receive Date: 20080307
  Receipt Date: 20080302
  Transmission Date: 20080703
  Serious: Yes (Hospitalization)
  Sender: FDA-Public Use
  Company Number: IL-ROCHE-547764

PATIENT
  Age: 65 Year
  Sex: Female
  Weight: 72 kg

DRUGS (4)
  1. RIBAVIRIN [Suspect]
     Route: 048
     Dates: start: 20080128, end: 20080211
  2. RIBAVIRIN [Suspect]
     Route: 048
     Dates: start: 20080212, end: 20080214
  3. PEG-INTERFERON ALFA 2A (RO 25-8310) [Suspect]
     Dosage: DOSAGE FORM REPORTED AS SYRINGE
     Route: 058
     Dates: start: 20080128, end: 20080204
  4. PEG-INTERFERON ALFA 2A (RO 25-8310) [Suspect]
     Route: 058
     Dates: start: 20080212, end: 20080212

REACTIONS (3)
  - ASTHMA [None]
  - PNEUMONIA [None]
  - SYNCOPE [None]
